FAERS Safety Report 8266092-7 (Version None)
Quarter: 2012Q1

REPORT INFORMATION
  Report Type: 
  Country: None (occurrence: None)
  Receive Date: 20120327
  Receipt Date: 20100428
  Transmission Date: 20120608
  Serious: Yes (Other)
  Sender: FDA-Public Use
  Company Number: PHHY2010US27657

PATIENT
  Sex: Male
  Weight: 86.8 kg

DRUGS (1)
  1. GLEEVEC [Suspect]
     Indication: CHRONIC MYELOID LEUKAEMIA
     Dosage: 400 MG,  , ORAL
     Route: 048
     Dates: start: 20091203

REACTIONS (2)
  - VOMITING [None]
  - DEPRESSION [None]
